FAERS Safety Report 26088334 (Version 2)
Quarter: 2025Q4

REPORT INFORMATION
  Report Type: Spontaneous
  Country: EU (occurrence: EU)
  Receive Date: 20251125
  Receipt Date: 20251202
  Transmission Date: 20260118
  Serious: Yes (Other)
  Sender: ABBVIE
  Company Number: None

PATIENT
  Age: 23 Year
  Sex: Female
  Weight: 60 kg

DRUGS (2)
  1. UPADACITINIB [Suspect]
     Active Substance: UPADACITINIB
     Indication: Dermatitis atopic
     Dosage: FROM 05/2024 TO 10/2025 15 MG / DAY ; FROM 10/2024 30 MG / DAY
     Route: 048
     Dates: start: 20240523
  2. METHYLPREDNISOLONE ACEPONATE [Concomitant]
     Active Substance: METHYLPREDNISOLONE ACEPONATE
     Indication: Product used for unknown indication

REACTIONS (4)
  - Superficial spreading melanoma stage unspecified [Recovered/Resolved]
  - Dysplastic naevus [Recovered/Resolved]
  - Naevoid melanoma [Recovered/Resolved]
  - Melanocytic naevus [Recovered/Resolved]

NARRATIVE: CASE EVENT DATE: 20251009
